FAERS Safety Report 15935566 (Version 1)
Quarter: 2019Q1

REPORT INFORMATION
  Report Type: Spontaneous
  Country: GB (occurrence: GB)
  Receive Date: 20190208
  Receipt Date: 20190208
  Transmission Date: 20190417
  Serious: Yes (Disabling)
  Sender: FDA-Public Use
  Company Number: GB-ACCORD-105456

PATIENT
  Age: 22 Year
  Sex: Female
  Weight: 62 kg

DRUGS (7)
  1. IBUPROFEN. [Concomitant]
     Active Substance: IBUPROFEN
     Dosage: AFTER FOOD
     Dates: start: 20180313, end: 20180327
  2. TRAMADOL. [Concomitant]
     Active Substance: TRAMADOL
     Dosage: TAKE 1 OR TWO UP TO  UP TO 4 TIMES A DAY, NOT WITH COCODAMOL
  3. DICLOFENAC [Concomitant]
     Active Substance: DICLOFENAC
     Dates: start: 20180404, end: 20180502
  4. AMITRIPTYLINE [Suspect]
     Active Substance: AMITRIPTYLINE
     Indication: PRODUCT USED FOR UNKNOWN INDICATION
  5. PIROXICAM. [Concomitant]
     Active Substance: PIROXICAM
     Dosage: APPLY 3-4 TIMES A DAY AS DIRECTED
     Dates: start: 20180323, end: 20180422
  6. NAPROXEN. [Concomitant]
     Active Substance: NAPROXEN
     Dosage: AFTER FOOD.
     Dates: start: 20171102
  7. LANSOPRAZOLE. [Concomitant]
     Active Substance: LANSOPRAZOLE
     Dosage: WHEN TAKING REGULAR NAPROXEN
     Dates: start: 20171102

REACTIONS (2)
  - Somnolence [Recovered/Resolved]
  - Sedation [Recovered/Resolved]

NARRATIVE: CASE EVENT DATE: 20180514
